FAERS Safety Report 11631946 (Version 1)
Quarter: 2015Q4

REPORT INFORMATION
  Report Type: Spontaneous
  Country: US (occurrence: None)
  Receive Date: 20151014
  Receipt Date: 20151014
  Transmission Date: 20160304
  Serious: Yes (Other)
  Sender: FDA-Public Use
  Company Number: None

PATIENT
  Age: 85 Year
  Sex: Female
  Weight: 51.71 kg

DRUGS (14)
  1. ISOSORBIDE ER [Concomitant]
  2. MAGNESIUM [Concomitant]
     Active Substance: MAGNESIUM
  3. LOPRESSOR ER [Concomitant]
  4. ZANTAC [Concomitant]
     Active Substance: RANITIDINE HYDROCHLORIDE
  5. PREDNISONE. [Concomitant]
     Active Substance: PREDNISONE
  6. ALPHAGAN P [Concomitant]
     Active Substance: BRIMONIDINE TARTRATE
  7. TOBRAMYCIN AND DEXAMETHASONE [Suspect]
     Active Substance: DEXAMETHASONE\TOBRAMYCIN
     Indication: CATARACT OPERATION
     Dosage: 0.3% OF 0.1% 1 DROP 4X A DAY EYE DROP
     Dates: start: 20150822, end: 20150822
  8. SINGULAIR [Concomitant]
     Active Substance: MONTELUKAST SODIUM
  9. TRAVATAN [Concomitant]
     Active Substance: TRAVOPROST
  10. XANAX [Concomitant]
     Active Substance: ALPRAZOLAM
  11. FISH OIL [Concomitant]
     Active Substance: FISH OIL
  12. TOBRAMYCIN AND DEXAMETHASONE [Suspect]
     Active Substance: DEXAMETHASONE\TOBRAMYCIN
     Indication: INFECTION PROPHYLAXIS
     Dosage: 0.3% OF 0.1% 1 DROP 4X A DAY EYE DROP
     Dates: start: 20150822, end: 20150822
  13. VENTOLIN [Concomitant]
     Active Substance: ALBUTEROL SULFATE
  14. POTASSIUM [Concomitant]
     Active Substance: POTASSIUM

REACTIONS (3)
  - Product formulation issue [None]
  - Bronchospasm [None]
  - Throat tightness [None]

NARRATIVE: CASE EVENT DATE: 20150822
